FAERS Safety Report 18221840 (Version 1)
Quarter: 2020Q3

REPORT INFORMATION
  Report Type: Spontaneous
  Country: FR (occurrence: FR)
  Receive Date: 20200902
  Receipt Date: 20200902
  Transmission Date: 20201103
  Serious: Yes (Other)
  Sender: FDA-Public Use
  Company Number: FR-PFIZER INC-2020336480

PATIENT
  Age: 44 Year
  Sex: Female
  Weight: 52 kg

DRUGS (4)
  1. CYCLOPHOSPHAMIDE. [Suspect]
     Active Substance: CYCLOPHOSPHAMIDE
     Indication: BREAST CANCER
     Dosage: 600 MG/M2, EVERY 3 WEEKS
     Route: 041
     Dates: start: 20180821, end: 20181024
  2. TAMOXIFENE (CITRATE DE) [Concomitant]
     Active Substance: TAMOXIFEN CITRATE
     Indication: BREAST CANCER
     Dosage: UNK
     Route: 048
     Dates: start: 20190407
  3. PACLITAXEL. [Suspect]
     Active Substance: PACLITAXEL
     Indication: BREAST CANCER
     Dosage: 80 MG/M2
     Route: 042
     Dates: start: 20181113, end: 20190115
  4. DOXORUBICIN HCL [Suspect]
     Active Substance: DOXORUBICIN HYDROCHLORIDE
     Dosage: 60 MG/M2, EVERY 3 WEEKS
     Route: 041
     Dates: start: 20180821, end: 20181024

REACTIONS (1)
  - Ventricular dysfunction [Recovering/Resolving]

NARRATIVE: CASE EVENT DATE: 20190227
